FAERS Safety Report 7363728-X (Version None)
Quarter: 2011Q1

REPORT INFORMATION
  Report Type: 
  Country: None (occurrence: None)
  Receive Date: 20110225
  Receipt Date: 20101101
  Transmission Date: 20110831
  Serious: No
  Sender: FDA-Public Use
  Company Number: 317771

PATIENT
  Age: 51 Year
  Sex: Female

DRUGS (2)
  1. VICTOZA [Suspect]
     Indication: TYPE 2 DIABETES MELLITUS
     Dosage: 0.6 MG, QD, SUBCUTANEOUS
     Route: 058
     Dates: start: 20101020
  2. INFLUENZA VIRUS VACCINE /00027001/ (INFLUENZA VIRUS VACCINE POLYVALENT [Suspect]
     Indication: PRODUCT USED FOR UNKNOWN INDICATION

REACTIONS (5)
  - SALIVARY HYPERSECRETION [None]
  - DIARRHOEA [None]
  - NAUSEA [None]
  - ABDOMINAL DISCOMFORT [None]
  - FLATULENCE [None]
